FAERS Safety Report 24083587 (Version 1)
Quarter: 2024Q3

REPORT INFORMATION
  Report Type: Spontaneous
  Country: RU (occurrence: RU)
  Receive Date: 20240712
  Receipt Date: 20240712
  Transmission Date: 20241017
  Serious: Yes (Other)
  Sender: ABBVIE
  Company Number: RU-LUNDBECK-DKLU4001322

PATIENT

DRUGS (1)
  1. ESCITALOPRAM [Suspect]
     Active Substance: ESCITALOPRAM OXALATE
     Indication: Panic disorder
     Dosage: 10 003
     Route: 065

REACTIONS (5)
  - Suicidal ideation [Recovered/Resolved]
  - Refusal of treatment by patient [Unknown]
  - Confusional state [Unknown]
  - Suicide attempt [Recovered/Resolved]
  - Anxiety [Unknown]
